FAERS Safety Report 18845292 (Version 1)
Quarter: 2021Q1

REPORT INFORMATION
  Report Type: Spontaneous
  Country: US (occurrence: US)
  Receive Date: 20210204
  Receipt Date: 20210204
  Transmission Date: 20210419
  Serious: Yes (Other)
  Sender: FDA-Public Use
  Company Number: None

PATIENT
  Age: 59 Year
  Sex: Female
  Weight: 84 kg

DRUGS (14)
  1. CHEWABLE ASPIRIN 81 MG DAILY [Concomitant]
     Dates: start: 20210102, end: 20210105
  2. OMNIPAQUE 350 MG VIAL ? 150 ML [Concomitant]
     Dates: start: 20210104, end: 20210104
  3. NTG 100 MCG INJECTION [Concomitant]
     Dates: start: 20210104, end: 20210104
  4. HEPARIN SODIUM INJECTION [Suspect]
     Active Substance: HEPARIN SODIUM
     Indication: CATHETERISATION CARDIAC
     Route: 040
     Dates: start: 20210104, end: 20210104
  5. ATORVASTATIN 80 MG [Concomitant]
     Active Substance: ATORVASTATIN
     Dates: start: 20210102, end: 20210105
  6. DILTIAZEM 1000 MCG/10 ML PRN [Concomitant]
     Dates: start: 20210104, end: 20210104
  7. CRESTOR 10 MG DAILY [Concomitant]
     Dates: start: 20201203, end: 20210101
  8. MUCINEX 600 MG PO BID [Concomitant]
     Dates: start: 20210103, end: 20210105
  9. HEPARIN DRIP 25,000 UNITS/250 ML [Concomitant]
     Dates: start: 20210101, end: 20210104
  10. LISINOPRIL 5 MG DAILY [Concomitant]
     Dates: end: 20210104
  11. TOPROL XL 50 MG X1 [Concomitant]
     Dates: start: 20210102, end: 20210102
  12. BRILINTA 180 MG X1 [Concomitant]
     Dates: start: 20210104, end: 20210104
  13. LIDOCAINE 1% PF 15 ML [Concomitant]
     Dates: start: 20210104, end: 20210104
  14. TOPROL XL 12.5 MG [Concomitant]
     Dates: start: 20210103, end: 20210104

REACTIONS (1)
  - Product quality issue [None]

NARRATIVE: CASE EVENT DATE: 20210104
